FAERS Safety Report 6046367-2 (Version None)
Quarter: 2009Q1

REPORT INFORMATION
  Report Type: 
  Country: None (occurrence: None)
  Receive Date: 20090122
  Receipt Date: 20090115
  Transmission Date: 20090719
  Serious: Yes (Other)
  Sender: FDA-Public Use
  Company Number: CA-ASTRAZENECA-2009UW01526

PATIENT
  Sex: Male
  Weight: 81.6 kg

DRUGS (2)
  1. CRESTOR [Suspect]
     Route: 048
  2. EZETROL [Suspect]

REACTIONS (1)
  - LIVER FUNCTION TEST ABNORMAL [None]
